FAERS Safety Report 7911094-0 (Version None)
Quarter: 2011Q4

REPORT INFORMATION
  Report Type: 
  Country: None (occurrence: None)
  Receive Date: 20111108
  Receipt Date: 20111102
  Transmission Date: 20120403
  Serious: Yes (Life-Threatening)
  Sender: FDA-Public Use
  Company Number: 2011SP051466

PATIENT
  Age: 24 Year
  Sex: Male
  Weight: 83 kg

DRUGS (3)
  1. PROPOFOL [Concomitant]
  2. ROCURONIUM BROMIDE [Suspect]
     Indication: ANAESTHESIA PROCEDURE
     Dosage: 40 MG;ONCE;IV
     Route: 042
     Dates: start: 20111021, end: 20111021
  3. SUFENTANIL CITRATE [Concomitant]

REACTIONS (3)
  - ELECTROCARDIOGRAM QT PROLONGED [None]
  - VENTRICULAR FIBRILLATION [None]
  - APPARENT LIFE THREATENING EVENT [None]
